FAERS Safety Report 23509483 (Version 2)
Quarter: 2024Q1

REPORT INFORMATION
  Report Type: Other
  Country: US (occurrence: US)
  Receive Date: 20240210
  Receipt Date: 20240221
  Transmission Date: 20240410
  Serious: No
  Sender: FDA-Public Use
  Company Number: US-TRAVERE-2024TVT00072

PATIENT
  Age: 68 Year
  Sex: Male

DRUGS (2)
  1. FILSPARI [Suspect]
     Active Substance: SPARSENTAN
     Indication: IgA nephropathy
     Dosage: TAKE 1 TABLET BY MOUTH 1 TIME A DAY FOR DAYS 1-14
     Route: 048
     Dates: start: 20240115
  2. FILSPARI [Suspect]
     Active Substance: SPARSENTAN
     Indication: End stage renal disease
     Dosage: 2 TABLETS BY MOUTH 1 TIME A DAY ON DAYS 15-30
     Route: 048

REACTIONS (8)
  - Fatigue [Unknown]
  - Urine output decreased [Unknown]
  - Somnolence [Unknown]
  - Head titubation [Unknown]
  - Hypotension [Unknown]
  - Palpitations [Unknown]
  - Dizziness [Unknown]
  - Nasopharyngitis [Unknown]

NARRATIVE: CASE EVENT DATE: 20240124
